FAERS Safety Report 6336046-6 (Version None)
Quarter: 2009Q3

REPORT INFORMATION
  Report Type: 
  Country: None (occurrence: None)
  Receive Date: 20090831
  Receipt Date: 20090831
  Transmission Date: 20100115
  Serious: Yes (Life-Threatening, Hospitalization, Disabling)
  Sender: FDA-Public Use
  Company Number: None

PATIENT
  Age: 56 Year
  Sex: Female
  Weight: 55.3388 kg

DRUGS (1)
  1. BOTOX [Suspect]

REACTIONS (8)
  - ASTHENIA [None]
  - DYSPHAGIA [None]
  - FATIGUE [None]
  - OESOPHAGEAL DISORDER [None]
  - OROPHARYNGEAL PAIN [None]
  - PARALYSIS [None]
  - POSTURE ABNORMAL [None]
  - SPEECH DISORDER [None]
